FAERS Safety Report 8174739-9 (Version None)
Quarter: 2012Q1

REPORT INFORMATION
  Report Type: 
  Country: None (occurrence: None)
  Receive Date: 20120229
  Receipt Date: 20120224
  Transmission Date: 20120608
  Serious: Yes (Other)
  Sender: FDA-Public Use
  Company Number: JP-GLAXOSMITHKLINE-B0784423A

PATIENT
  Sex: Female

DRUGS (4)
  1. RELENZA [Suspect]
     Indication: INFLUENZA
     Dosage: 20MG PER DAY
     Route: 055
     Dates: start: 20120219, end: 20120221
  2. ACETAMINOPHEN [Concomitant]
     Route: 065
  3. UNKNOWN DRUG [Concomitant]
     Route: 048
  4. UNKNOWN DRUG [Concomitant]
     Route: 065

REACTIONS (3)
  - SELF INJURIOUS BEHAVIOUR [None]
  - AGGRESSION [None]
  - AGITATION [None]
